FAERS Safety Report 7416263-4 (Version None)
Quarter: 2011Q2

REPORT INFORMATION
  Report Type: 
  Country: None (occurrence: None)
  Receive Date: 20110414
  Receipt Date: 20110408
  Transmission Date: 20111010
  Serious: Yes (Death, Hospitalization)
  Sender: FDA-Public Use
  Company Number: A0817484A

PATIENT
  Age: 62 Year
  Sex: Male
  Weight: 93.2 kg

DRUGS (5)
  1. AVANDAMET [Suspect]
     Indication: DIABETES MELLITUS
     Dosage: 1TAB THREE TIMES PER DAY
     Route: 048
     Dates: start: 20020729, end: 20080914
  2. AMARYL [Concomitant]
  3. PLENDIL [Concomitant]
  4. AVANDIA [Suspect]
     Indication: DIABETES MELLITUS
     Dosage: 4MG THREE TIMES PER DAY
     Route: 048
     Dates: start: 20020501
  5. LOTREL [Concomitant]

REACTIONS (5)
  - HYPOXIC-ISCHAEMIC ENCEPHALOPATHY [None]
  - CARDIAC FAILURE CONGESTIVE [None]
  - HEART INJURY [None]
  - CONVULSION [None]
  - MYOCARDIAL INFARCTION [None]
